FAERS Safety Report 16655472 (Version 1)
Quarter: 2019Q3

REPORT INFORMATION
  Report Type: Spontaneous
  Country: US (occurrence: US)
  Receive Date: 20190617
  Receipt Date: 20190617
  Transmission Date: 20191004
  Serious: Yes (Other)
  Sender: FDA-Public Use
  Company Number: None

PATIENT
  Age: 74 Year
  Sex: Female
  Weight: 65.77 kg

DRUGS (2)
  1. AZELASTINE NASAL SPRAY [Suspect]
     Active Substance: AZELASTINE
  2. FEMARA [Suspect]
     Active Substance: LETROZOLE
     Indication: BREAST CANCER
     Dosage: ?          QUANTITY:1 DF DOSAGE FORM;?
     Route: 048
     Dates: start: 20180607, end: 20190517

REACTIONS (5)
  - Influenza like illness [None]
  - Vomiting [None]
  - Nausea [None]
  - Pyrexia [None]
  - Breast cancer recurrent [None]

NARRATIVE: CASE EVENT DATE: 20190514
